FAERS Safety Report 8391660-1 (Version None)
Quarter: 2012Q2

REPORT INFORMATION
  Report Type: 
  Country: None (occurrence: None)
  Receive Date: 20120529
  Receipt Date: 20120518
  Transmission Date: 20120825
  Serious: Yes (Hospitalization, Other)
  Sender: FDA-Public Use
  Company Number: AU-ASTRAZENECA-2012SE32165

PATIENT
  Age: 0 Day
  Sex: Male
  Weight: 2.8 kg

DRUGS (5)
  1. LEXAPRO [Suspect]
     Indication: ANTIDEPRESSANT THERAPY
     Dosage: 20MG DAILY STARTED AT 16/40 WEEKS AND STOPPED AFTER DELIVERY
     Route: 064
  2. SEROQUEL XR [Suspect]
     Indication: PSYCHOTIC DISORDER
     Dosage: 75-100 MG DAILY STARTED PRE-PREGNANCY AND STOPPED AFTER DELIVERY
     Route: 064
  3. DEXAMETHASONE [Concomitant]
     Indication: ATTENTION DEFICIT/HYPERACTIVITY DISORDER
     Dosage: 10MG AS REQUIRED STARTED PRE-PREGNANCY AND STOPPED AT 35/40 WEEKS
     Route: 064
  4. DEXTROAMPHETAMINE [Suspect]
     Indication: ATTENTION DEFICIT/HYPERACTIVITY DISORDER
     Dosage: 10MG AS REQUIRED STARTED PRE-PREGNANCY UNTIL 35/40 WEEKS
     Route: 064
  5. BLACKMORES P+BF [Concomitant]
     Indication: VITAMIN SUPPLEMENTATION
     Route: 064

REACTIONS (2)
  - DRUG WITHDRAWAL SYNDROME NEONATAL [None]
  - MECONIUM ABNORMAL [None]
